FAERS Safety Report 24607402 (Version 2)
Quarter: 2024Q4

REPORT INFORMATION
  Report Type: Spontaneous
  Country: US (occurrence: US)
  Receive Date: 20241112
  Receipt Date: 20241125
  Transmission Date: 20250115
  Serious: No
  Sender: ARGENX BVBA
  Company Number: US-ARGENX-2024-ARGX-US009896

PATIENT

DRUGS (1)
  1. VYVGART [Suspect]
     Active Substance: EFGARTIGIMOD ALFA-FCAB
     Indication: Myasthenia gravis
     Dosage: UNK
     Route: 042

REACTIONS (2)
  - Eye movement disorder [Unknown]
  - Muscular weakness [Unknown]
